FAERS Safety Report 24537593 (Version 2)
Quarter: 2024Q4

REPORT INFORMATION
  Report Type: Report from Study
  Country: CO (occurrence: CO)
  Receive Date: 20241023
  Receipt Date: 20241104
  Transmission Date: 20250115
  Serious: Yes (Life-Threatening, Hospitalization, Other)
  Sender: ABBVIE
  Company Number: CO-ABBVIE-5969347

PATIENT
  Sex: Male

DRUGS (8)
  1. VENETOCLAX [Suspect]
     Active Substance: VENETOCLAX
     Indication: Acute myeloid leukaemia
     Route: 048
     Dates: start: 20240928, end: 20241003
  2. AZACITIDINE [Concomitant]
     Active Substance: AZACITIDINE
     Indication: Acute myeloid leukaemia
     Dates: start: 20240928, end: 20241003
  3. TRAMADOL [Concomitant]
     Active Substance: TRAMADOL
     Indication: Product used for unknown indication
  4. TRAZODONE [Concomitant]
     Active Substance: TRAZODONE HYDROCHLORIDE
     Indication: Product used for unknown indication
  5. ACETAMINOPHEN [Concomitant]
     Active Substance: ACETAMINOPHEN
     Indication: Product used for unknown indication
  6. OMEPRAZOLE [Concomitant]
     Active Substance: OMEPRAZOLE
     Indication: Product used for unknown indication
  7. ALLOPURINOL [Concomitant]
     Active Substance: ALLOPURINOL
     Indication: Product used for unknown indication
  8. ACYCLOVIR [Concomitant]
     Active Substance: ACYCLOVIR
     Indication: Product used for unknown indication

REACTIONS (17)
  - Febrile neutropenia [Recovering/Resolving]
  - Decreased appetite [Unknown]
  - Bacteraemia [Unknown]
  - Chills [Unknown]
  - Cytopenia [Unknown]
  - Urinary incontinence [Recovering/Resolving]
  - Pancytopenia [Unknown]
  - Hypotension [Unknown]
  - Metabolic acidosis [Unknown]
  - Hyperlactacidaemia [Unknown]
  - Pancytopenia [Unknown]
  - Arthralgia [Recovering/Resolving]
  - Pyrexia [Unknown]
  - Arthralgia [Not Recovered/Not Resolved]
  - Acute phase reaction [Unknown]
  - Septic shock [Recovering/Resolving]
  - Constipation [Unknown]

NARRATIVE: CASE EVENT DATE: 20240101
